FAERS Safety Report 22373606 (Version 2)
Quarter: 2023Q2

REPORT INFORMATION
  Report Type: Report from Study
  Country: US (occurrence: US)
  Receive Date: 20230526
  Receipt Date: 20230602
  Transmission Date: 20230721
  Serious: Yes (Other)
  Sender: FDA-Public Use
  Company Number: US-XERIS PHARMACEUTICALS-2022XER00028

PATIENT
  Age: 49 Year
  Sex: Female

DRUGS (5)
  1. KEVEYIS [Suspect]
     Active Substance: DICHLORPHENAMIDE
     Indication: Paralysis
     Dosage: ONE TABLET (50 MG), 2X/DAY
     Route: 048
  2. KEVEYIS [Suspect]
     Active Substance: DICHLORPHENAMIDE
     Dosage: ONE TABLET (50 MG), 2X/DAY
     Route: 048
     Dates: start: 2022
  3. KEVEYIS [Suspect]
     Active Substance: DICHLORPHENAMIDE
     Dosage: 1.5 TABLETS (75 MG), 2X/DAY
     Route: 048
  4. KEVEYIS [Suspect]
     Active Substance: DICHLORPHENAMIDE
     Dosage: 75 MG, 1X/DAY IN THE MORNING
     Route: 048
  5. KEVEYIS [Suspect]
     Active Substance: DICHLORPHENAMIDE
     Dosage: 50 MG, 1X/DAY AT NIGHT
     Route: 048

REACTIONS (9)
  - Intracranial pressure increased [Unknown]
  - Brain fog [Not Recovered/Not Resolved]
  - Somnolence [Not Recovered/Not Resolved]
  - Liver disorder [Recovering/Resolving]
  - Sensitivity to weather change [Recovered/Resolved]
  - Asthenia [Recovered/Resolved]
  - Paralysis [Recovered/Resolved]
  - Confusional state [Not Recovered/Not Resolved]
  - Unevaluable event [Unknown]

NARRATIVE: CASE EVENT DATE: 20211225
